FAERS Safety Report 17887297 (Version 1)
Quarter: 2020Q2

REPORT INFORMATION
  Report Type: Spontaneous
  Country: US (occurrence: US)
  Receive Date: 20200611
  Receipt Date: 20200611
  Transmission Date: 20200714
  Serious: No
  Sender: FDA-Public Use
  Company Number: US-BRACCO-2020US00148

PATIENT
  Age: 68 Year
  Sex: Female

DRUGS (1)
  1. MULTIHANCE [Suspect]
     Active Substance: GADOBENATE DIMEGLUMINE
     Indication: MAGNETIC RESONANCE IMAGING BRAIN
     Dosage: 16 ML, SINGLE

REACTIONS (3)
  - Erythema [Recovering/Resolving]
  - Throat irritation [Recovering/Resolving]
  - Nasal congestion [Recovering/Resolving]
